FAERS Safety Report 8736216 (Version 2)
Quarter: 2012Q4

REPORT INFORMATION
  Report Type: 
  Country: US (occurrence: US)
  Receive Date: 20120822
  Receipt Date: 20120829
  Transmission Date: 20130627
  Serious: Yes (Hospitalization)
  Sender: FDA-Public Use
  Company Number: US-B.I. PHARMACEUTICALS,INC./RIDGEFIELD-2012-BP-19963BP

PATIENT
  Age: 71 None
  Sex: Female

DRUGS (3)
  1. PRADAXA [Suspect]
     Indication: ATRIAL FIBRILLATION
     Dosage: 300 mg
     Route: 048
     Dates: start: 201206, end: 201207
  2. ADVIL [Suspect]
     Indication: ARTHRITIS
     Route: 048
     Dates: start: 2011, end: 201207
  3. LEVOTHYROXINE [Concomitant]
     Indication: THYROID DISORDER
     Dosage: 50 mcg
     Route: 048
     Dates: start: 2007

REACTIONS (2)
  - Gastric haemorrhage [Recovered/Resolved]
  - Asthenia [Not Recovered/Not Resolved]
